FAERS Safety Report 8286937-4 (Version None)
Quarter: 2012Q2

REPORT INFORMATION
  Report Type: 
  Country: None (occurrence: None)
  Receive Date: 20120416
  Receipt Date: 20120411
  Transmission Date: 20120825
  Serious: Yes (Death)
  Sender: FDA-Public Use
  Company Number: US-ASTELLAS-2012US003291

PATIENT
  Sex: Female
  Weight: 68 kg

DRUGS (3)
  1. PAIN MEDICATION [Suspect]
     Indication: PAIN
     Dosage: UNK
     Route: 065
  2. GEMZAR [Concomitant]
     Indication: PRODUCT USED FOR UNKNOWN INDICATION
     Dosage: 4 DOSES
     Dates: start: 20120118, end: 20120227
  3. TARCEVA [Suspect]
     Indication: PANCREATIC CARCINOMA METASTATIC
     Dosage: 100 MG, UID/QD
     Route: 048
     Dates: start: 20120201

REACTIONS (2)
  - DEATH [None]
  - CONFUSIONAL STATE [None]
